FAERS Safety Report 6404907-5 (Version None)
Quarter: 2009Q4

REPORT INFORMATION
  Report Type: 
  Country: None (occurrence: None)
  Receive Date: 20091019
  Receipt Date: 20091005
  Transmission Date: 20100525
  Serious: Yes (Other)
  Sender: FDA-Public Use
  Company Number: US-CELGENEUS-163-21880-09042138

PATIENT
  Age: 68 Year

DRUGS (4)
  1. REVLIMID [Suspect]
     Route: 048
  2. REVLIMID [Suspect]
     Route: 048
  3. AZACITIDINE INJECTABLE [Suspect]
     Route: 058
  4. AZACITIDINE INJECTABLE [Suspect]
     Route: 058

REACTIONS (20)
  - ATRIAL FIBRILLATION [None]
  - BASAL CELL CARCINOMA [None]
  - CEREBRAL HAEMORRHAGE [None]
  - CONSTIPATION [None]
  - COUGH [None]
  - DIARRHOEA [None]
  - DIZZINESS [None]
  - DYSPEPSIA [None]
  - DYSPNOEA [None]
  - EXFOLIATIVE RASH [None]
  - FATIGUE [None]
  - FEBRILE NEUTROPENIA [None]
  - HEADACHE [None]
  - INFECTION [None]
  - INJECTION SITE REACTION [None]
  - INSOMNIA [None]
  - NAUSEA [None]
  - PRURITUS [None]
  - PYREXIA [None]
  - RENAL FAILURE [None]
